FAERS Safety Report 22988539 (Version 2)
Quarter: 2024Q1

REPORT INFORMATION
  Report Type: Spontaneous
  Country: CA (occurrence: CA)
  Receive Date: 20230926
  Receipt Date: 20240226
  Transmission Date: 20240409
  Serious: Yes (Hospitalization, Other)
  Sender: FDA-Public Use
  Company Number: CA-FreseniusKabi-FK202314815

PATIENT
  Age: 62 Year
  Sex: Female

DRUGS (8)
  1. ETOPOSIDE [Suspect]
     Active Substance: ETOPOSIDE
     Indication: Plasma cell myeloma refractory
     Dosage: FORM OF ADMIN:  NOT SPECIFIED
     Route: 065
  2. CISPLATIN [Suspect]
     Active Substance: CISPLATIN
     Indication: Plasma cell myeloma refractory
     Route: 042
  3. CYCLOPHOSPHAMIDE [Suspect]
     Active Substance: CYCLOPHOSPHAMIDE
     Indication: Plasma cell myeloma refractory
     Dosage: FOA: NOT SPECIFIED
     Route: 065
  4. DEXAMETHASONE [Suspect]
     Active Substance: DEXAMETHASONE
     Indication: Plasma cell myeloma refractory
     Dosage: FOA: NOT SPECIFIED
     Route: 065
  5. DOXORUBICIN HYDROCHLORIDE [Suspect]
     Active Substance: DOXORUBICIN HYDROCHLORIDE
     Indication: Plasma cell myeloma refractory
     Dosage: FOA: INJECTION
     Route: 065
  6. CARFILZOMIB [Concomitant]
     Active Substance: CARFILZOMIB
     Indication: Product used for unknown indication
     Route: 065
  7. DEXPANTHENOL [Concomitant]
     Active Substance: DEXPANTHENOL
     Indication: Product used for unknown indication
     Route: 065
  8. VENETOCLAX [Concomitant]
     Active Substance: VENETOCLAX
     Indication: Product used for unknown indication
     Route: 065

REACTIONS (7)
  - Pyrexia [Unknown]
  - Confusional state [Unknown]
  - Hepatic enzyme increased [Unknown]
  - Hepatic steatosis [Unknown]
  - Plasma cell myeloma refractory [Unknown]
  - Plasma cells increased [Unknown]
  - Product use in unapproved indication [Unknown]
